FAERS Safety Report 5233393-6 (Version None)
Quarter: 2007Q1

REPORT INFORMATION
  Report Type: 
  Country: None (occurrence: None)
  Receive Date: 20070206
  Receipt Date: 20070130
  Transmission Date: 20070707
  Serious: Yes (Hospitalization)
  Sender: FDA-Public Use
  Company Number: S07-USA-00449-01

PATIENT
  Age: 52 Year
  Sex: Male

DRUGS (2)
  1. CAMPRAL [Suspect]
     Indication: ALCOHOL USE
     Dosage: 666 MG TID PO
     Route: 048
     Dates: start: 20050909, end: 20051101
  2. CAMPRAL [Suspect]
     Indication: PROPHYLAXIS
     Dosage: 666 MG TID PO
     Route: 048
     Dates: start: 20050909, end: 20051101

REACTIONS (11)
  - ABDOMINAL DISTENSION [None]
  - ASCITES [None]
  - ASTHENIA [None]
  - CONSTIPATION [None]
  - DECREASED APPETITE [None]
  - DIARRHOEA [None]
  - DYSPNOEA [None]
  - GAIT DISTURBANCE [None]
  - GENERALISED OEDEMA [None]
  - HEPATOCELLULAR DAMAGE [None]
  - RENAL FAILURE [None]
